FAERS Safety Report 4465324-0 (Version None)
Quarter: 2004Q4

REPORT INFORMATION
  Report Type: 
  Country: None (occurrence: None)
  Receive Date: 20041004
  Receipt Date: 20041001
  Transmission Date: 20050328
  Serious: Yes (Other)
  Sender: FDA-Public Use
  Company Number: NZ-MERCK-0410NZL00003

PATIENT
  Sex: Female

DRUGS (8)
  1. AMILORIDE HYDROCHLORIDE AND HYDROCHLOROTHIAZIDE [Concomitant]
     Route: 048
  2. ASPIRIN [Concomitant]
     Route: 048
  3. DOXEPIN HYDROCHLORIDE [Concomitant]
     Route: 048
  4. ISOSORBIDE MONONITRATE [Concomitant]
     Route: 048
  5. LEVOTHYROXINE SODIUM [Concomitant]
     Route: 048
  6. OMEPRAZOLE [Concomitant]
     Route: 048
  7. VIOXX [Suspect]
     Indication: ARTHRITIS
     Route: 048
     Dates: start: 20020101
  8. TRIAZOLAM [Concomitant]
     Route: 048

REACTIONS (1)
  - CEREBROVASCULAR ACCIDENT [None]
